FAERS Safety Report 4296581-1 (Version None)
Quarter: 2004Q1

REPORT INFORMATION
  Report Type: 
  Country: None (occurrence: None)
  Receive Date: 20040217
  Receipt Date: 20031203
  Transmission Date: 20041129
  Serious: Yes (Other)
  Sender: FDA-Public Use
  Company Number: FR-GLAXOSMITHKLINE-B0316853A

PATIENT
  Age: 59 Year
  Sex: Female
  Weight: 84 kg

DRUGS (8)
  1. AVANDIA [Suspect]
     Dosage: 4MG PER DAY
     Route: 048
     Dates: start: 20030704, end: 20030810
  2. AMAREL [Concomitant]
     Dosage: 6MG PER DAY
     Route: 048
     Dates: start: 20030723, end: 20030810
  3. MEDIATOR [Concomitant]
     Dosage: 150MG THREE TIMES PER DAY
     Route: 048
     Dates: start: 20010101, end: 20030810
  4. TRIATEC [Concomitant]
     Indication: HYPERTENSION
     Dosage: 5MG PER DAY
     Route: 048
     Dates: start: 20030401, end: 20030810
  5. ESIDRIX [Concomitant]
     Indication: HYPERTENSION
     Dosage: 12.5MG PER DAY
     Route: 048
     Dates: start: 20030722, end: 20030810
  6. AVLOCARDYL [Concomitant]
     Indication: SUPRAVENTRICULAR EXTRASYSTOLES
     Dosage: 20MG THREE TIMES PER DAY
     Route: 048
     Dates: start: 20010101
  7. LEVOTHYROX [Concomitant]
     Indication: HYPOTHYROIDISM
     Dosage: 125MCG PER DAY
     Route: 048
  8. PROZAC [Concomitant]
     Indication: DEPRESSION
     Dosage: 20MG PER DAY
     Route: 048

REACTIONS (3)
  - HYPERTENSION [None]
  - OEDEMA PERIPHERAL [None]
  - WEIGHT INCREASED [None]
